FAERS Safety Report 7431127-8 (Version None)
Quarter: 2011Q2

REPORT INFORMATION
  Report Type: 
  Country: None (occurrence: None)
  Receive Date: 20110421
  Receipt Date: 20110407
  Transmission Date: 20111010
  Serious: Yes (Other)
  Sender: FDA-Public Use
  Company Number: US-WATSON-2011-03197

PATIENT
  Age: 30 Year
  Sex: Male
  Weight: 61.678 kg

DRUGS (3)
  1. PERCOCET [Concomitant]
     Indication: RENAL COLIC
     Dosage: 1 TABLET EVERY 5-6 HRS AS NEEDED
     Route: 048
     Dates: start: 20110309
  2. RAPAFLO [Suspect]
     Indication: NEPHROLITHIASIS
     Dosage: 1 CAPSULE DAILY
     Route: 048
     Dates: start: 20110309, end: 20110310
  3. LORTAB [Concomitant]
     Indication: RENAL COLIC
     Dosage: 1 TO 2 TAB EVERY 6-8 HRS AS NEEDED
     Route: 048
     Dates: start: 20110304, end: 20110309

REACTIONS (4)
  - DIZZINESS [None]
  - HYPERTENSION [None]
  - HEADACHE [None]
  - OFF LABEL USE [None]
